FAERS Safety Report 6234124-3 (Version None)
Quarter: 2009Q2

REPORT INFORMATION
  Report Type: 
  Country: None (occurrence: None)
  Receive Date: 20090612
  Receipt Date: 20090312
  Transmission Date: 20091009
  Serious: Yes (Death)
  Sender: FDA-Public Use
  Company Number: 1-17841672

PATIENT
  Sex: Female

DRUGS (2)
  1. FENTANYL TRANSDERMAL SYSTEM [Suspect]
     Dosage: 25 MCG/HR, TRANSDERMAL
     Route: 062
     Dates: end: 20061217
  2. FENTANYL TRANSDERMAL SYSTEM [Suspect]
     Dosage: 100 MCG/HR, TRANSDERMAL
     Route: 062
     Dates: end: 20061217

REACTIONS (1)
  - NARCOTIC INTOXICATION [None]
